FAERS Safety Report 8573680 (Version 2)
Quarter: 2012Q4

REPORT INFORMATION
  Report Type: 
  Country: US (occurrence: US)
  Receive Date: 20120522
  Receipt Date: 20120920
  Transmission Date: 20130627
  Serious: Yes (Hospitalization)
  Sender: FDA-Public Use
  Company Number: US-US-EMD SERONO, INC.-7132880

PATIENT
  Age: 44 None
  Sex: Female
  Weight: 105 kg

DRUGS (1)
  1. REBIF [Suspect]
     Indication: MULTIPLE SCLEROSIS
     Route: 058
     Dates: start: 20110912

REACTIONS (3)
  - Appendicitis [Recovered/Resolved]
  - Gallbladder disorder [Recovered/Resolved]
  - Headache [Recovering/Resolving]
